FAERS Safety Report 13438887 (Version 1)
Quarter: 2017Q2

REPORT INFORMATION
  Report Type: Spontaneous
  Country: US (occurrence: US)
  Receive Date: 20170413
  Receipt Date: 20170413
  Transmission Date: 20170830
  Serious: No
  Sender: FDA-Public Use
  Company Number: US-ROCHE-1440655

PATIENT
  Sex: Female

DRUGS (2)
  1. ROCEPHIN [Suspect]
     Active Substance: CEFTRIAXONE SODIUM
     Indication: INFECTION
  2. ROCEPHIN [Suspect]
     Active Substance: CEFTRIAXONE SODIUM
     Indication: LYME DISEASE
     Dosage: 5 DAYS A WEEK FOR 10 WEEKS
     Route: 042
     Dates: start: 2010, end: 2010

REACTIONS (5)
  - Hormone level abnormal [Not Recovered/Not Resolved]
  - Malaise [Not Recovered/Not Resolved]
  - Dehydroepiandrosterone decreased [Unknown]
  - Nephrolithiasis [Recovered/Resolved]
  - Drug metabolising enzyme test abnormal [Not Recovered/Not Resolved]
